FAERS Safety Report 4704227-0 (Version None)
Quarter: 2005Q2

REPORT INFORMATION
  Report Type: 
  Country: None (occurrence: None)
  Receive Date: 20050630
  Receipt Date: 20030324
  Transmission Date: 20051028
  Serious: Yes (Life-Threatening)
  Sender: FDA-Public Use
  Company Number: US-BRISTOL-MYERS SQUIBB COMPANY-12200382

PATIENT
  Age: 49 Year
  Sex: Male
  Weight: 72 kg

DRUGS (16)
  1. CISPLATIN [Suspect]
     Indication: OROPHARYNGEAL CANCER STAGE UNSPECIFIED
     Route: 042
     Dates: start: 20010825, end: 20010825
  2. CETUXIMAB [Suspect]
     Indication: OROPHARYNGEAL CANCER STAGE UNSPECIFIED
     Route: 042
     Dates: start: 20010825, end: 20010825
  3. DEXAMETHASONE [Concomitant]
     Indication: PREMEDICATION
     Dates: start: 20010825, end: 20010825
  4. ONDANSETRON [Concomitant]
     Indication: PREMEDICATION
     Dates: start: 20010825, end: 20010825
  5. ACETAMINOPHEN [Concomitant]
  6. DIPHENHYDRAMINE [Concomitant]
  7. LIDOCAINE [Concomitant]
  8. LORAZEPAM [Concomitant]
     Route: 042
     Dates: start: 20010821
  9. MORPHINE [Concomitant]
     Dates: start: 20010821
  10. NICOTINE [Concomitant]
     Dates: start: 20010821
  11. PROCHLORPERAZINE [Concomitant]
     Route: 042
     Dates: start: 20010821
  12. ACYCLOVIR [Concomitant]
     Dates: start: 20010821
  13. CEFAZOLIN SODIUM [Concomitant]
     Route: 042
     Dates: start: 20010821
  14. CLINDAMYCIN [Concomitant]
  15. FUROSEMIDE [Concomitant]
     Route: 042
     Dates: start: 20010821
  16. EUCERIN CREAM [Concomitant]

REACTIONS (1)
  - ANAPHYLACTIC REACTION [None]
